FAERS Safety Report 8985534 (Version 1)
Quarter: 2012Q4

REPORT INFORMATION
  Report Type: 
  Country: GB (occurrence: GB)
  Receive Date: 20121226
  Receipt Date: 20121226
  Transmission Date: 20130627
  Serious: Yes (Other)
  Sender: FDA-Public Use
  Company Number: GB-VERTEX PHARMACEUTICALS INC.-2012-021642

PATIENT
  Age: 52 Year
  Sex: Male

DRUGS (6)
  1. VX-950 (TELAPREVIR) [Suspect]
     Indication: HEPATITIS C
     Dosage: UNK
     Route: 048
     Dates: start: 20120724
  2. PARACETAMOL [Suspect]
     Indication: PRODUCT USED FOR UNKNOWN INDICATION
     Dosage: Dosage Form: Unspecified
     Route: 065
  3. RIBAVIRIN [Suspect]
     Indication: HEPATITIS C
     Dosage: Dosage Form: Unspecified
     Route: 048
     Dates: start: 20120724
  4. PEG INTERFERON [Suspect]
     Indication: HEPATITIS C
     Dosage: Dosage Form: Injection
     Route: 058
     Dates: start: 20120724
  5. VITAMIN [Concomitant]
     Indication: PRODUCT USED FOR UNKNOWN INDICATION
     Dosage: Dosage Form: Unspecified
     Route: 065
  6. VITAMIN [Concomitant]
     Dosage: Dosage Form: Unspecified
     Route: 065

REACTIONS (6)
  - Iron deficiency anaemia [Unknown]
  - Depression [Not Recovered/Not Resolved]
  - Headache [Unknown]
  - Asthenia [Not Recovered/Not Resolved]
  - Pruritus [Not Recovered/Not Resolved]
  - Nausea [Not Recovered/Not Resolved]
